FAERS Safety Report 10300482 (Version 10)
Quarter: 2016Q2

REPORT INFORMATION
  Report Type: Spontaneous
  Country: US (occurrence: US)
  Receive Date: 20140713
  Receipt Date: 20160511
  Transmission Date: 20160815
  Serious: Yes (Hospitalization, Other)
  Sender: FDA-Public Use
  Company Number: US-SA-2014SA089453

PATIENT
  Age: 64 Year
  Sex: Male
  Weight: 81.64 kg

DRUGS (32)
  1. LOPRESSOR [Concomitant]
     Active Substance: METOPROLOL TARTRATE
  2. PLETAL [Concomitant]
     Active Substance: CILOSTAZOL
  3. INSULIN [Concomitant]
     Active Substance: INSULIN NOS
  4. PLAVIX [Suspect]
     Active Substance: CLOPIDOGREL BISULFATE
     Indication: PROPHYLAXIS
     Route: 048
     Dates: start: 20110430, end: 20120105
  5. LOSARTAN. [Concomitant]
     Active Substance: LOSARTAN
     Route: 048
  6. TUMS [Concomitant]
     Active Substance: CALCIUM CARBONATE
  7. FENTANYL. [Concomitant]
     Active Substance: FENTANYL
  8. DILTIAZEM [Concomitant]
     Active Substance: DILTIAZEM
     Dosage: ORAL CAPSULE EXTENDED RELEASE
  9. HYDROCHLOROTHIAZIDE. [Concomitant]
     Active Substance: HYDROCHLOROTHIAZIDE
     Route: 048
  10. VITAMIN D [Concomitant]
     Active Substance: CHOLECALCIFEROL
  11. MAGNESIUM SULFATE. [Concomitant]
     Active Substance: MAGNESIUM SULFATE
  12. GABAPENTIN. [Concomitant]
     Active Substance: GABAPENTIN
  13. TYLENOL [Concomitant]
     Active Substance: ACETAMINOPHEN
  14. CARDIZEM [Concomitant]
     Active Substance: DILTIAZEM HYDROCHLORIDE
  15. ECOTRIN [Concomitant]
     Active Substance: ASPIRIN
  16. HEPARIN [Concomitant]
     Active Substance: HEPARIN SODIUM
  17. SIMVASTATIN. [Concomitant]
     Active Substance: SIMVASTATIN
  18. COUMADIN [Concomitant]
     Active Substance: WARFARIN SODIUM
  19. SOTALOL. [Concomitant]
     Active Substance: SOTALOL
     Route: 048
  20. ALTACE [Concomitant]
     Active Substance: RAMIPRIL
  21. PROTONIX [Concomitant]
     Active Substance: PANTOPRAZOLE SODIUM
  22. HALDOL [Concomitant]
     Active Substance: HALOPERIDOL
  23. BENADRYL [Concomitant]
     Active Substance: DIPHENHYDRAMINE HYDROCHLORIDE
  24. FLAGYL [Concomitant]
     Active Substance: METRONIDAZOLE\METRONIDAZOLE HYDROCHLORIDE
  25. PRIMAXIN IV [Concomitant]
     Active Substance: CILASTATIN SODIUM\IMIPENEM
  26. COMBIVENT [Concomitant]
     Active Substance: ALBUTEROL SULFATE\IPRATROPIUM BROMIDE
  27. LIPITOR [Concomitant]
     Active Substance: ATORVASTATIN CALCIUM
  28. ASPIRIN. [Concomitant]
     Active Substance: ASPIRIN
  29. COZAAR [Concomitant]
     Active Substance: LOSARTAN POTASSIUM
  30. LOVENOX [Concomitant]
     Active Substance: ENOXAPARIN SODIUM
  31. VITAMIN A [Concomitant]
     Active Substance: VITAMIN A
  32. CLONIDINE. [Concomitant]
     Active Substance: CLONIDINE

REACTIONS (3)
  - Multiple injuries [Unknown]
  - Paraplegia [Not Recovered/Not Resolved]
  - Gastrointestinal haemorrhage [Recovered/Resolved]

NARRATIVE: CASE EVENT DATE: 20120105
